FAERS Safety Report 5240343-5 (Version None)
Quarter: 2007Q1

REPORT INFORMATION
  Report Type: 
  Country: None (occurrence: None)
  Receive Date: 20070219
  Receipt Date: 20070213
  Transmission Date: 20070707
  Serious: Yes (Hospitalization)
  Sender: FDA-Public Use
  Company Number: 2007SE00834

PATIENT
  Age: 69 Year
  Sex: Male

DRUGS (2)
  1. BLOPRESS TABLETS 4 [Suspect]
     Indication: HYPERTENSION
     Route: 048
     Dates: start: 20070101
  2. HERBESSER [Concomitant]
     Indication: HYPERTENSION
     Route: 048

REACTIONS (1)
  - GLAUCOMA [None]
